FAERS Safety Report 19245688 (Version 1)
Quarter: 2021Q2

REPORT INFORMATION
  Report Type: Spontaneous
  Country: NL (occurrence: NL)
  Receive Date: 20210512
  Receipt Date: 20210512
  Transmission Date: 20210717
  Serious: Yes (Other)
  Sender: FDA-Public Use
  Company Number: NL-ROCHE-2828466

PATIENT
  Age: 73 Year
  Sex: Female
  Weight: 100 kg

DRUGS (7)
  1. OMEPRAZOL [Concomitant]
     Active Substance: OMEPRAZOLE
     Dosage: 20MG 1DD1
  2. DOCETAXEL. [Suspect]
     Active Substance: DOCETAXEL
     Indication: BREAST CANCER
     Dosage: 20 MG/ML (MILLIGRAM PER MILLILITER)
     Route: 065
  3. DEXAMETHASONE. [Concomitant]
     Active Substance: DEXAMETHASONE
     Dosage: TABLET, 4 MG (MILLIGRAM)
  4. METOCLOPRAMIDE. [Concomitant]
     Active Substance: METOCLOPRAMIDE
     Dosage: TABLET, 10 MG (MILLIGRAM)
  5. PERJETA [Suspect]
     Active Substance: PERTUZUMAB
     Indication: BREAST CANCER
     Dosage: 420 MG, THIRD COURSE
     Route: 065
     Dates: start: 20210129, end: 20210402
  6. HERZUMA [Suspect]
     Active Substance: TRASTUZUMAB-PKRB
     Indication: BREAST CANCER
     Route: 065
  7. XARELTO [Concomitant]
     Active Substance: RIVAROXABAN
     Dosage: 15MG 2DD1

REACTIONS (5)
  - Taste disorder [Unknown]
  - Parosmia [Unknown]
  - Pulmonary embolism [Unknown]
  - Nausea [Unknown]
  - Diarrhoea [Unknown]

NARRATIVE: CASE EVENT DATE: 20210129
